FAERS Safety Report 15390505 (Version 1)
Quarter: 2018Q3

REPORT INFORMATION
  Report Type: Report from Study
  Country: US (occurrence: US)
  Receive Date: 20180917
  Receipt Date: 20180917
  Transmission Date: 20181010
  Serious: Yes (Hospitalization, Other)
  Sender: FDA-Public Use
  Company Number: US-ACCORD-071689

PATIENT

DRUGS (1)
  1. METHOTREXATE. [Suspect]
     Active Substance: METHOTREXATE
     Indication: ERDHEIM-CHESTER DISEASE
     Dosage: 15 MG/WEEK ORALLY (RANGE, 7.5?25 MG)
     Route: 048

REACTIONS (2)
  - Cellulitis [Unknown]
  - Off label use [Unknown]
